FAERS Safety Report 7530640-2 (Version None)
Quarter: 2011Q2

REPORT INFORMATION
  Report Type: 
  Country: None (occurrence: None)
  Receive Date: 20110607
  Receipt Date: 20110525
  Transmission Date: 20111010
  Serious: Yes (Other)
  Sender: FDA-Public Use
  Company Number: US-UCBSA-034074

PATIENT
  Sex: Female

DRUGS (12)
  1. FOLIC ACID [Concomitant]
  2. ARAVA [Concomitant]
  3. CORTISONE ACETATE [Concomitant]
     Indication: DYSPNOEA
     Dosage: 100 MG
     Route: 048
     Dates: start: 20110522, end: 20110522
  4. CORTISONE ACETATE [Concomitant]
     Dosage: 50 MG
     Route: 048
     Dates: start: 20110523, end: 20110524
  5. ATACAND [Concomitant]
  6. METHOTREXATE [Concomitant]
  7. BISOPROLOL FUMARATE [Concomitant]
  8. CORTISONE ACETATE [Concomitant]
     Dosage: 20 MG
     Route: 048
     Dates: start: 20110524, end: 20110501
  9. OMEPRAZOLE [Concomitant]
  10. CORTISONE ACETATE [Concomitant]
     Dosage: DOSE REDUCED
     Route: 048
     Dates: start: 20110501
  11. CIMZIA [Suspect]
     Indication: RHEUMATOID ARTHRITIS
     Route: 058
     Dates: start: 20110521, end: 20110521
  12. SIMVASTATIN [Concomitant]

REACTIONS (8)
  - VOMITING [None]
  - URTICARIA [None]
  - RASH GENERALISED [None]
  - MUSCULOSKELETAL STIFFNESS [None]
  - PAIN IN EXTREMITY [None]
  - DYSPNOEA [None]
  - HYPOTONIA [None]
  - INFLUENZA LIKE ILLNESS [None]
